FAERS Safety Report 22727846 (Version 7)
Quarter: 2024Q1

REPORT INFORMATION
  Report Type: Spontaneous
  Country: US (occurrence: US)
  Receive Date: 20230720
  Receipt Date: 20240209
  Transmission Date: 20240410
  Serious: No
  Sender: FDA-Public Use
  Company Number: US-PFIZER INC-PV202300045814

PATIENT
  Age: 14 Year
  Sex: Male

DRUGS (2)
  1. GENOTROPIN [Suspect]
     Active Substance: SOMATROPIN
     Dosage: 1.1 MG, DAILY
  2. GENOTROPIN [Suspect]
     Active Substance: SOMATROPIN
     Dosage: 1.2 MG, DAILY

REACTIONS (8)
  - Product prescribing error [Unknown]
  - Drug dose omission by device [Unknown]
  - Device use error [Unknown]
  - Poor quality device used [Unknown]
  - Device information output issue [Unknown]
  - Device leakage [Unknown]
  - Device physical property issue [Unknown]
  - Device information output issue [Unknown]
